FAERS Safety Report 6994076-5 (Version None)
Quarter: 2010Q3

REPORT INFORMATION
  Report Type: 
  Country: None (occurrence: None)
  Receive Date: 20100917
  Receipt Date: 20071109
  Transmission Date: 20110219
  Serious: Yes (Death)
  Sender: FDA-Public Use
  Company Number: US-ASTRAZENECA-2006UW27518

PATIENT
  Age: 1065 Month
  Sex: Female
  Weight: 78 kg

DRUGS (68)
  1. SEROQUEL [Suspect]
     Route: 048
     Dates: start: 20011003
  2. SEROQUEL [Suspect]
     Dosage: 25 MG IN THE MORNING + 50 MG AT NIGHT, TWO TIMES A DAY, TOTAL DAILY DOSE 75 MG
     Route: 048
     Dates: start: 20011005, end: 20011008
  3. SEROQUEL [Suspect]
     Dosage: 50 MG IN THE MORNING + 100 MG AT NIGHT, TWO TIMES A DAY, TOTAL DAILY DOSE 150 MG
     Route: 048
     Dates: start: 20011008, end: 20011017
  4. SEROQUEL [Suspect]
     Dosage: 50 MG IN THE MORNING + 150 MG AT NIGHT, TWO TIMES A DAY, TOTAL DAILY DOSE 200 MG
     Route: 048
     Dates: start: 20011017, end: 20011029
  5. SEROQUEL [Suspect]
     Dosage: 25 MG IN THE MORNING + 200 MG AT NIGHT, TWO TIMES A DAY, TOTAL DAILY DOSE 225 MG
     Route: 048
     Dates: start: 20011029
  6. SEROQUEL [Suspect]
     Dosage: 25 - 500 MG
     Route: 048
     Dates: start: 20011005
  7. HALDOL [Concomitant]
     Indication: AGITATION
     Dates: start: 19950101, end: 20050101
  8. HALDOL [Concomitant]
     Route: 048
     Dates: start: 19970601
  9. HALDOL [Concomitant]
     Dosage: 5 MG/ML AMPUL, 0.2 ML (1 MG) FOUR TIMES A DAY IF UNABLE TO TAKE ORAL
     Route: 030
  10. HALDOL [Concomitant]
     Route: 048
  11. HALDOL [Concomitant]
     Route: 048
  12. HALDOL [Concomitant]
     Route: 048
  13. HALDOL [Concomitant]
     Route: 048
     Dates: end: 19980120
  14. HALDOL [Concomitant]
     Route: 048
     Dates: start: 19980120, end: 19990310
  15. HALDOL [Concomitant]
     Route: 048
     Dates: start: 19990310, end: 19991210
  16. HALDOL [Concomitant]
     Route: 048
     Dates: start: 19991210
  17. HALDOL [Concomitant]
     Route: 048
     Dates: start: 19991216, end: 20010409
  18. HALDOL [Concomitant]
     Route: 048
     Dates: end: 20010401
  19. HALDOL [Concomitant]
     Route: 048
     Dates: start: 20010709, end: 20010813
  20. HALDOL [Concomitant]
     Route: 048
     Dates: start: 20010813, end: 20011003
  21. HALDOL [Concomitant]
     Route: 048
     Dates: end: 20011008
  22. HALDOL [Concomitant]
     Route: 048
     Dates: start: 20011008, end: 20011009
  23. RISPERDAL [Concomitant]
     Dates: start: 19950101, end: 20050101
  24. REMERON [Concomitant]
     Dates: start: 20020520
  25. DESYREL [Concomitant]
     Dates: start: 19970613
  26. DESYREL [Concomitant]
     Route: 048
     Dates: start: 19970601
  27. DESYREL [Concomitant]
     Route: 048
     Dates: start: 19970701
  28. DESYREL [Concomitant]
     Route: 048
     Dates: start: 19970101
  29. DESYREL [Concomitant]
     Dosage: EVERY MORNING AND AT 1 PM (IN ADDITION TO 50 MG AT BEDTIME)
     Route: 048
     Dates: start: 19970101
  30. DESYREL [Concomitant]
     Route: 048
     Dates: start: 19980101
  31. DESYREL [Concomitant]
     Route: 048
     Dates: start: 19990101
  32. DESYREL [Concomitant]
     Route: 048
     Dates: start: 19990101
  33. DESYREL [Concomitant]
     Route: 048
     Dates: start: 20000811, end: 20010521
  34. DESYREL [Concomitant]
     Route: 048
     Dates: start: 20010101, end: 20011231
  35. PERI-COLACE [Concomitant]
     Route: 048
     Dates: start: 19970614, end: 19980430
  36. PERI-COLACE [Concomitant]
     Route: 048
  37. DARVOCET-N 100 [Concomitant]
     Indication: BACK PAIN
     Dosage: 1-2 TABLETS EVERY 6 HOURS PRN
     Route: 048
     Dates: start: 19970527
  38. DARVOCET-N 100 [Concomitant]
     Route: 048
     Dates: start: 19970903
  39. DARVOCET-N 100 [Concomitant]
     Route: 048
     Dates: start: 19980331, end: 19980930
  40. ARTANE [Concomitant]
     Route: 048
     Dates: start: 19970531
  41. ARTANE [Concomitant]
     Route: 048
     Dates: end: 20010409
  42. ARTANE [Concomitant]
     Dosage: AT NIGHT
     Route: 048
     Dates: end: 20010409
  43. ARTANE [Concomitant]
     Route: 048
     Dates: start: 20010709, end: 20010917
  44. TYLENOL EX-STRENGTH [Concomitant]
     Indication: PAIN
     Dosage: 1-2 TABLETS (0.5-1GM) EVERY 6 HOURS PRN
     Route: 048
  45. TYLENOL EX-STRENGTH [Concomitant]
     Indication: BACK PAIN
     Dosage: 1-2 TABLETS (0.5-1GM) EVERY 6 HOURS PRN
     Route: 048
  46. ZOLOFT [Concomitant]
     Route: 048
     Dates: start: 19980701
  47. ZOLOFT [Concomitant]
     Route: 048
     Dates: start: 20001108, end: 20010521
  48. TYLENOL W/CODEINE 3 [Concomitant]
     Indication: BACK PAIN
     Dosage: EVERY SIX HOURS
     Dates: start: 19980930
  49. TYLENOL W/CODEINE 3 [Concomitant]
     Dosage: 300/30
     Route: 048
     Dates: start: 19981017, end: 19981108
  50. TYLENOL W/CODEINE 3 [Concomitant]
     Dosage: 300/30
     Route: 048
     Dates: start: 19981108
  51. TYLENOL W/CODEINE 3 [Concomitant]
     Dosage: 300/30
     Route: 048
  52. TYLENOL W/CODEINE 3 [Concomitant]
     Dosage: 300/30
     Route: 048
     Dates: start: 19980101, end: 19990719
  53. TYLENOL W/CODEINE 3 [Concomitant]
     Dosage: 300/30
     Route: 048
     Dates: start: 19980101, end: 19990719
  54. TYLENOL W/CODEINE 3 [Concomitant]
     Route: 048
     Dates: start: 20000815, end: 20010723
  55. TYLENOL W/CODEINE 3 [Concomitant]
     Route: 048
     Dates: start: 20010723
  56. TYLENOL W/CODEINE 3 [Concomitant]
     Route: 048
     Dates: start: 20010727, end: 20010727
  57. TYLENOL W/CODEINE 3 [Concomitant]
     Dosage: 300/30 1-2 TABLETS EVERY 6 HOURS PRN
     Route: 048
     Dates: end: 20020522
  58. VIOXX [Concomitant]
     Dates: start: 20000808
  59. VIOXX [Concomitant]
     Dates: start: 20000811, end: 20010327
  60. VIOXX [Concomitant]
     Route: 048
  61. OYSTER SHELL CALCIUM WITH VITAMIN D [Concomitant]
     Route: 048
     Dates: start: 20000817
  62. ZYPREXA [Concomitant]
     Route: 048
     Dates: start: 20010401, end: 20010416
  63. ZYPREXA [Concomitant]
     Route: 048
     Dates: start: 20010416, end: 20010521
  64. ZYPREXA [Concomitant]
     Route: 048
     Dates: start: 20010521, end: 20010612
  65. ZYPREXA [Concomitant]
     Route: 048
     Dates: start: 20010626
  66. PREVACID [Concomitant]
     Route: 048
     Dates: end: 20010703
  67. NEXIUM [Concomitant]
     Dates: start: 20010717
  68. TRAZODONE HCL [Concomitant]
     Indication: DEPRESSION
     Dosage: 50 - 500 MG
     Dates: start: 19970809

REACTIONS (3)
  - CEREBROVASCULAR ACCIDENT [None]
  - DIABETES MELLITUS [None]
  - GASTRIC ULCER [None]
